FAERS Safety Report 7921202-3 (Version None)
Quarter: 2011Q4

REPORT INFORMATION
  Report Type: 
  Country: None (occurrence: None)
  Receive Date: 20111117
  Receipt Date: 20111107
  Transmission Date: 20120403
  Serious: Yes (Hospitalization)
  Sender: FDA-Public Use
  Company Number: US-BAYER-2011-081780

PATIENT
  Sex: Female
  Weight: 126.98 kg

DRUGS (21)
  1. YAZ [Suspect]
     Indication: ACNE
     Dosage: UNK
     Dates: start: 20041201, end: 20090801
  2. YASMIN [Suspect]
     Indication: ACNE
     Dosage: UNK
     Dates: start: 20041201, end: 20090801
  3. YASMIN [Suspect]
  4. YASMIN [Suspect]
     Indication: PREMENSTRUAL SYNDROME
  5. DIURETICS [Concomitant]
  6. THYROID MEDICATIONS [Concomitant]
  7. DROSPIRENONE AND ETHINYL ESTRADIOL [Suspect]
     Indication: ACNE
     Dosage: UNK
     Dates: start: 20041201, end: 20090801
  8. POTASSIUM-SPARING AGENTS [Concomitant]
  9. NSAID'S [Concomitant]
  10. YAZ [Suspect]
     Indication: PREMENSTRUAL SYNDROME
  11. YAZ [Suspect]
  12. DROSPIRENONE AND ETHINYL ESTRADIOL [Suspect]
     Indication: PREMENSTRUAL SYNDROME
  13. DROSPIRENONE AND ETHINYL ESTRADIOL [Suspect]
  14. ZYRTEC [Concomitant]
  15. PRELIEF [Concomitant]
  16. ASCORBIC ACID [Concomitant]
  17. PHENAZOPYRIDINE HCL TAB [Concomitant]
  18. VICODIN [Concomitant]
  19. DIET FORMULATIONS FOR TREATMENT OF OBESITY [Concomitant]
  20. PREVACID [Concomitant]
  21. CLONAZEPAM [Concomitant]

REACTIONS (5)
  - CHOLELITHIASIS [None]
  - INJURY [None]
  - CHOLECYSTITIS [None]
  - PAIN [None]
  - ABDOMINAL DISCOMFORT [None]
